FAERS Safety Report 8185508-8 (Version None)
Quarter: 2012Q1

REPORT INFORMATION
  Report Type: 
  Country: None (occurrence: None)
  Receive Date: 20120301
  Receipt Date: 20120215
  Transmission Date: 20120608
  Serious: Yes (Death)
  Sender: FDA-Public Use
  Company Number: 2012SGN00039

PATIENT
  Age: 75 Year
  Sex: Male
  Weight: 97.5 kg

DRUGS (18)
  1. FISH OIL (FISH OIL) [Concomitant]
  2. LORTAB [Concomitant]
  3. CARDIZEM [Concomitant]
  4. GLIPIZIDE [Concomitant]
  5. NEURONTIN [Concomitant]
  6. VASOTEC (ENLAPRIL MALEATE) [Concomitant]
  7. COLCHINE (COLCHICINE) [Concomitant]
  8. TACROLIMUS [Concomitant]
  9. ZETIA [Concomitant]
  10. LASIX [Concomitant]
  11. AXID [Concomitant]
  12. MAGNESIUM (MAGNESIUM) [Concomitant]
  13. NIACIN [Concomitant]
  14. ZANTAC [Concomitant]
  15. BRENTUXIMAB VEDOTIN) BRENTUXIMAB VEDOTIN) INJECTION [Suspect]
     Indication: SQUAMOUS CELL CARCINOMA
     Dosage: 1.8 MG/KG, Q21D, INTRAVENOUS
     Route: 042
     Dates: start: 20120118, end: 20120118
  16. ASPRIN (ASPIRIN) [Concomitant]
  17. GEMFIBROZIL [Concomitant]
  18. VASOTEC [Concomitant]

REACTIONS (20)
  - MUSCULAR WEAKNESS [None]
  - HAEMOGLOBIN DECREASED [None]
  - RESPIRATORY ARREST [None]
  - RENAL TUBULAR NECROSIS [None]
  - ASTHENIA [None]
  - VOMITING [None]
  - BLOOD PRESSURE DECREASED [None]
  - WHITE BLOOD CELL COUNT DECREASED [None]
  - HAEMODIALYSIS [None]
  - NAUSEA [None]
  - DIARRHOEA [None]
  - HALLUCINATION, VISUAL [None]
  - ABDOMINAL PAIN [None]
  - RASH PRURITIC [None]
  - DYSPNOEA [None]
  - RENAL FAILURE ACUTE [None]
  - HYPOPHAGIA [None]
  - HYPOVOLAEMIA [None]
  - STAPHYLOCOCCUS TEST POSITIVE [None]
  - ACIDOSIS [None]
